FAERS Safety Report 5110496-8 (Version None)
Quarter: 2006Q3

REPORT INFORMATION
  Report Type: 
  Country: None (occurrence: None)
  Receive Date: 20060921
  Receipt Date: 20060913
  Transmission Date: 20061208
  Serious: Yes (Hospitalization)
  Sender: FDA-Public Use
  Company Number: 2006SE04928

PATIENT
  Age: 72 Year
  Sex: Female

DRUGS (8)
  1. METOPROLOL SUCCINATE [Suspect]
     Route: 048
     Dates: end: 20060501
  2. FRAGMIN [Suspect]
     Route: 058
     Dates: start: 20060508, end: 20060516
  3. TROMBYL [Suspect]
     Route: 048
  4. PLAVIX [Suspect]
     Route: 048
     Dates: start: 20060508, end: 20060516
  5. SIMVASTATIN [Concomitant]
     Route: 048
  6. NITROMEX [Concomitant]
     Route: 060
  7. ALVEDON FORTE [Concomitant]
     Route: 048
  8. TIPAROL [Concomitant]

REACTIONS (2)
  - HAEMATOMA [None]
  - NIGHTMARE [None]
